FAERS Safety Report 10161993 (Version 3)
Quarter: 2014Q3

REPORT INFORMATION
  Report Type: Spontaneous
  Country: US (occurrence: None)
  Receive Date: 20140507
  Receipt Date: 20140707
  Transmission Date: 20150326
  Serious: Yes (Other)
  Sender: FDA-Public Use
  Company Number: 2014-US-004989

PATIENT
  Age: 67 Year
  Sex: Female
  Weight: 49.9 kg

DRUGS (1)
  1. XYREM [Suspect]
     Active Substance: SODIUM OXYBATE
     Indication: INSOMNIA
     Route: 048
     Dates: start: 200907, end: 2009

REACTIONS (6)
  - Off label use [None]
  - Joint dislocation [None]
  - Hip surgery [None]
  - Surgical procedure repeated [None]
  - Hip arthroplasty [None]
  - Unevaluable event [None]

NARRATIVE: CASE EVENT DATE: 201311
